FAERS Safety Report 20196218 (Version 1)
Quarter: 2021Q4

REPORT INFORMATION
  Report Type: Spontaneous
  Country: CN (occurrence: CN)
  Receive Date: 20211216
  Receipt Date: 20211216
  Transmission Date: 20220303
  Serious: Yes (Hospitalization, Other)
  Sender: FDA-Public Use
  Company Number: CN-SA-SAC20211215000642

PATIENT
  Age: 79 Year
  Sex: Female
  Weight: 61 kg

DRUGS (5)
  1. ELOXATIN [Suspect]
     Active Substance: OXALIPLATIN
     Indication: Neoplasm malignant
     Dosage: 130 MG, QD
     Route: 041
     Dates: start: 20210319, end: 20210320
  2. LEUCOVORIN CALCIUM [Suspect]
     Active Substance: LEUCOVORIN CALCIUM
     Indication: Neoplasm malignant
     Dosage: 300 MG, QD
     Route: 041
     Dates: start: 20210319, end: 20210321
  3. FLUOROURACIL [Suspect]
     Active Substance: FLUOROURACIL
     Indication: Neoplasm malignant
     Dosage: 3250 MG, QD
     Dates: start: 20210319, end: 20210321
  4. PROMETHAZINE HYDROCHLORIDE [Suspect]
     Active Substance: PROMETHAZINE HYDROCHLORIDE
     Indication: Antiemetic supportive care
     Dosage: 25 MG, QD
     Route: 041
     Dates: start: 20210319, end: 20210320
  5. DEXAMETHASONE SODIUM PHOSPHATE [Suspect]
     Active Substance: DEXAMETHASONE SODIUM PHOSPHATE
     Indication: Antiemetic supportive care
     Dosage: 5 MG, QD
     Route: 041
     Dates: start: 20210319, end: 20210320

REACTIONS (1)
  - Myelosuppression [Recovering/Resolving]

NARRATIVE: CASE EVENT DATE: 20210322
